FAERS Safety Report 8333098-9 (Version None)
Quarter: 2012Q2

REPORT INFORMATION
  Report Type: 
  Country: None (occurrence: None)
  Receive Date: 20120503
  Receipt Date: 20120501
  Transmission Date: 20120825
  Serious: No
  Sender: FDA-Public Use
  Company Number: PHHY2012NL037088

PATIENT
  Sex: Female

DRUGS (2)
  1. ESOMEPRAZOLE [Concomitant]
  2. NILOTINIB [Suspect]
     Dosage: 300 MG, BID
     Route: 048

REACTIONS (3)
  - ABDOMINAL DISCOMFORT [None]
  - SLEEP DISORDER [None]
  - SKIN TIGHTNESS [None]
